FAERS Safety Report 5773180-3 (Version None)
Quarter: 2008Q2

REPORT INFORMATION
  Report Type: 
  Country: None (occurrence: None)
  Receive Date: 20080613
  Receipt Date: 20080613
  Transmission Date: 20081010
  Serious: Yes (Life-Threatening, Other)
  Sender: FDA-Public Use
  Company Number: None

PATIENT
  Sex: Male
  Weight: 106 kg

DRUGS (1)
  1. THYMOGLOBULIN [Suspect]
     Indication: PROPHYLAXIS AGAINST TRANSPLANT REJECTION
     Dosage: 25MG QD IV DRIP
     Route: 042
     Dates: start: 20080609, end: 20080609

REACTIONS (4)
  - BLOOD PRESSURE DIASTOLIC DECREASED [None]
  - CHILLS [None]
  - HEART RATE INCREASED [None]
  - PYREXIA [None]
